FAERS Safety Report 4286595-X (Version None)
Quarter: 2004Q1

REPORT INFORMATION
  Report Type: 
  Country: None (occurrence: None)
  Receive Date: 20040205
  Receipt Date: 20040205
  Transmission Date: 20041129
  Serious: Yes (Life-Threatening)
  Sender: FDA-Public Use
  Company Number: None

PATIENT
  Sex: Male
  Weight: 108.4097 kg

DRUGS (2)
  1. CARBAMAZEPINE [Suspect]
     Indication: CONVULSION
     Dosage: 600 MG PO BID
     Route: 048
     Dates: start: 19780101, end: 20010101
  2. DEPAKOTE [Concomitant]

REACTIONS (2)
  - DRUG EFFECT DECREASED [None]
  - PHARMACEUTICAL PRODUCT COMPLAINT [None]
